FAERS Safety Report 4447083-0 (Version None)
Quarter: 2004Q3

REPORT INFORMATION
  Report Type: 
  Country: None (occurrence: None)
  Receive Date: 20040813
  Receipt Date: 20040512
  Transmission Date: 20050211
  Serious: No
  Sender: FDA-Public Use
  Company Number: S04-USA-03577-01

PATIENT
  Age: 78 Year
  Sex: Female

DRUGS (9)
  1. NAMENDA [Suspect]
     Indication: DEMENTIA
     Dosage: 5 MG QD PO
     Route: 048
     Dates: start: 20040507
  2. REMINYL [Concomitant]
  3. TOPROL-XL [Concomitant]
  4. LESCOL [Concomitant]
  5. FOLIC ACID [Concomitant]
  6. ACTOS [Concomitant]
  7. CAPTOPRIL [Concomitant]
  8. PLETAL [Concomitant]
  9. LEVOXYL [Concomitant]

REACTIONS (2)
  - NAUSEA [None]
  - VOMITING [None]
